FAERS Safety Report 18253423 (Version 7)
Quarter: 2023Q2

REPORT INFORMATION
  Report Type: Report from Study
  Country: DE (occurrence: DE)
  Receive Date: 20200910
  Receipt Date: 20230512
  Transmission Date: 20230722
  Serious: Yes (Hospitalization, Other)
  Sender: FDA-Public Use
  Company Number: DE-002147023-NVSC2020DE233874

PATIENT
  Sex: Female
  Weight: 62 kg

DRUGS (9)
  1. EXEMESTANE [Suspect]
     Active Substance: EXEMESTANE
     Indication: Hormone receptor positive HER2 negative breast cancer
     Dosage: 25 MG, QD (DAILY DOSE), 1X/DAY
     Route: 048
     Dates: start: 20200525, end: 20200526
  2. EXEMESTANE [Suspect]
     Active Substance: EXEMESTANE
     Dosage: 25 MG, QD
     Route: 048
     Dates: start: 20200525, end: 20200807
  3. EXEMESTANE [Suspect]
     Active Substance: EXEMESTANE
     Dosage: 25 MG, QD, 1X/DAY
     Route: 048
     Dates: start: 20200807, end: 20201021
  4. ZOLEDRONIC ACID [Suspect]
     Active Substance: ZOLEDRONIC ACID
     Dosage: UNK
  5. KISQALI [Suspect]
     Active Substance: RIBOCICLIB
     Indication: Breast cancer metastatic
     Dosage: 600 MG, CYCLIC (DAILY DOSE (SCHEME 21 DAYS INTAKE, 7 DAYS PAUSE))
     Route: 048
     Dates: start: 20200225, end: 20200423
  6. KISQALI [Suspect]
     Active Substance: RIBOCICLIB
     Dosage: 600 MG, CYCLIC (DAILY DOSE (SCHEME: 21 DAYS INTAKE, 7 DAYS PAUSE))
     Route: 048
     Dates: start: 20200508, end: 20200526
  7. FULVESTRANT [Suspect]
     Active Substance: FULVESTRANT
     Indication: Breast cancer metastatic
     Dosage: 500 MG, QMO (DAILY DOSE), MONTHLY
     Route: 030
     Dates: start: 20200224, end: 20200322
  8. FULVESTRANT [Suspect]
     Active Substance: FULVESTRANT
     Dosage: 300 MG, QMO (DAILY DOSE), MONTHLY
     Route: 065
     Dates: start: 20200323, end: 20200323
  9. FULVESTRANT [Suspect]
     Active Substance: FULVESTRANT
     Dosage: 500 MG, QMO (DAILY DOSE), MONTHLY
     Route: 030
     Dates: start: 20200324, end: 20200415

REACTIONS (10)
  - Hypertension [Recovered/Resolved]
  - Hip fracture [Recovered/Resolved]
  - Hepatitis [Recovered/Resolved]
  - Osteonecrosis of jaw [Not Recovered/Not Resolved]
  - Bone sequestrum [Recovered/Resolved]
  - Jaw disorder [Recovered/Resolved]
  - Gingival swelling [Unknown]
  - Gingival erythema [Unknown]
  - Arthralgia [Recovered/Resolved]
  - Chromaturia [Unknown]

NARRATIVE: CASE EVENT DATE: 20200714
